FAERS Safety Report 12843042 (Version 4)
Quarter: 2017Q1

REPORT INFORMATION
  Report Type: Report from Study
  Country: US (occurrence: US)
  Receive Date: 20161013
  Receipt Date: 20170102
  Transmission Date: 20170428
  Serious: Yes (Hospitalization, Other)
  Sender: FDA-Public Use
  Company Number: PHEH2016US026170

PATIENT
  Sex: Female

DRUGS (2)
  1. OXCARBAZEPINE. [Suspect]
     Active Substance: OXCARBAZEPINE
     Indication: MENTAL DISORDER
     Dosage: UNK
     Route: 065
  2. TRILEPTAL [Suspect]
     Active Substance: OXCARBAZEPINE
     Indication: PRODUCT USED FOR UNKNOWN INDICATION
     Dosage: UNK
     Route: 065

REACTIONS (8)
  - Bipolar disorder [Unknown]
  - Nausea [Unknown]
  - Herpes virus infection [Unknown]
  - Mental disorder [Unknown]
  - Malaise [Unknown]
  - Anxiety [Unknown]
  - Drug ineffective [Unknown]
  - Feeling abnormal [Unknown]
